FAERS Safety Report 9848827 (Version 1)
Quarter: 2014Q1

REPORT INFORMATION
  Report Type: Report from Study
  Country: BR (occurrence: BR)
  Receive Date: 20140128
  Receipt Date: 20140128
  Transmission Date: 20141002
  Serious: Yes (Other)
  Sender: FDA-Public Use
  Company Number: PHHY2014BR008484

PATIENT
  Age: 59 Year
  Sex: Male
  Weight: 83 kg

DRUGS (4)
  1. DIOVAN [Suspect]
     Indication: CARDIAC DISORDER
     Dosage: UNK UKN, UNK
  2. DIOVAN [Suspect]
     Indication: OFF LABEL USE
  3. DIUPRESS [Concomitant]
     Dosage: UNK UKN, UNK
  4. MAREVAN [Concomitant]
     Indication: BLOOD DISORDER
     Dosage: UNK UKN, UNK

REACTIONS (3)
  - Acromegaly [Unknown]
  - Pituitary tumour benign [Unknown]
  - Bone disorder [Unknown]
